FAERS Safety Report 7552800-7 (Version None)
Quarter: 2011Q2

REPORT INFORMATION
  Report Type: 
  Country: None (occurrence: None)
  Receive Date: 20110616
  Receipt Date: 20110608
  Transmission Date: 20111010
  Serious: Yes (Other)
  Sender: FDA-Public Use
  Company Number: PHHY2011NL50365

PATIENT
  Sex: Female
  Weight: 73 kg

DRUGS (4)
  1. TRAMADOL HCL [Suspect]
     Indication: HYPERVENTILATION
  2. TRAMADOL HCL [Suspect]
     Indication: MYALGIA
     Dosage: UNK
     Route: 048
     Dates: start: 20110506
  3. DIAZEPAM [Suspect]
     Indication: HYPERVENTILATION
  4. DIAZEPAM [Suspect]
     Indication: MYALGIA
     Dosage: UNK
     Route: 048
     Dates: start: 20110506

REACTIONS (3)
  - OLIGURIA [None]
  - SCLERAL DISCOLOURATION [None]
  - DYSPEPSIA [None]
